FAERS Safety Report 8278028-3 (Version None)
Quarter: 2012Q2

REPORT INFORMATION
  Report Type: 
  Country: None (occurrence: None)
  Receive Date: 20120412
  Receipt Date: 20120403
  Transmission Date: 20120825
  Serious: Yes (Hospitalization, Other)
  Sender: FDA-Public Use
  Company Number: US-MYLANLABS-2012S1007426

PATIENT
  Sex: Male
  Weight: 89.36 kg

DRUGS (20)
  1. ADALAT [Concomitant]
  2. IMDUR [Concomitant]
  3. LOVASTATIN [Concomitant]
  4. ASPIRIN [Concomitant]
  5. LASIX [Concomitant]
  6. NITROGLYCERIN [Concomitant]
  7. INDOCIN [Concomitant]
  8. COUMADIN [Concomitant]
  9. VICODIN [Concomitant]
  10. DIGOXIN [Suspect]
     Route: 048
     Dates: start: 20060825, end: 20081122
  11. CARDURA [Concomitant]
  12. ATENOLOL [Concomitant]
  13. NORVASC [Concomitant]
  14. COLCHICINE [Concomitant]
  15. VIAGRA [Concomitant]
  16. ISOSORBIDE MONONITRATE [Concomitant]
  17. ALLOPURINOL [Concomitant]
  18. LUPRON [Concomitant]
  19. PLAVIX [Concomitant]
  20. FLOMAX [Concomitant]

REACTIONS (53)
  - ATRIAL FIBRILLATION [None]
  - TRANSIENT ISCHAEMIC ATTACK [None]
  - GASTROENTERITIS [None]
  - OSTEOPOROSIS [None]
  - OVERWEIGHT [None]
  - WEIGHT DECREASED [None]
  - HYPOAESTHESIA [None]
  - LEFT VENTRICULAR HYPERTROPHY [None]
  - DIZZINESS [None]
  - FALL [None]
  - KYPHOSIS [None]
  - MYALGIA [None]
  - SKIN LESION [None]
  - MITRAL VALVE INCOMPETENCE [None]
  - CARDIAC MURMUR [None]
  - CHEST PAIN [None]
  - HOT FLUSH [None]
  - ILL-DEFINED DISORDER [None]
  - LIPOMA [None]
  - OEDEMA PERIPHERAL [None]
  - TENDERNESS [None]
  - CEREBRAL INFARCTION [None]
  - HEMIPARESIS [None]
  - PROSTATE CANCER [None]
  - APRAXIA [None]
  - DYSARTHRIA [None]
  - INCREASED TENDENCY TO BRUISE [None]
  - NOCTURIA [None]
  - UPPER RESPIRATORY TRACT INFECTION [None]
  - ARTHRALGIA [None]
  - DEHYDRATION [None]
  - HEART RATE IRREGULAR [None]
  - LABORATORY TEST ABNORMAL [None]
  - ACTINIC KERATOSIS [None]
  - GOUT [None]
  - HEADACHE [None]
  - HYPERGLYCAEMIA [None]
  - TOXICITY TO VARIOUS AGENTS [None]
  - BALANCE DISORDER [None]
  - BLOOD URIC ACID INCREASED [None]
  - DIARRHOEA [None]
  - ECCHYMOSIS [None]
  - INCONTINENCE [None]
  - JOINT EFFUSION [None]
  - RENAL FAILURE CHRONIC [None]
  - URINARY HESITATION [None]
  - COUGH [None]
  - ECHOCARDIOGRAM ABNORMAL [None]
  - FIBULA FRACTURE [None]
  - GAIT DISTURBANCE [None]
  - HYPERLIPIDAEMIA [None]
  - PALPITATIONS [None]
  - VOMITING [None]
